FAERS Safety Report 7246718-7 (Version None)
Quarter: 2011Q1

REPORT INFORMATION
  Report Type: 
  Country: None (occurrence: None)
  Receive Date: 20110127
  Receipt Date: 20110103
  Transmission Date: 20110831
  Serious: Yes (Death)
  Sender: FDA-Public Use
  Company Number: US-BAYER-2011-001454

PATIENT
  Age: 47 Year
  Sex: Female

DRUGS (2)
  1. ACETYLSALICYLIC ACID + CAFFEINE [Suspect]
     Route: 048
  2. ACETAMINOPHEN AND OXYCODONE HCL [Suspect]
     Route: 048

REACTIONS (1)
  - TOXICITY TO VARIOUS AGENTS [None]
